FAERS Safety Report 5988447-3 (Version None)
Quarter: 2008Q4

REPORT INFORMATION
  Report Type: 
  Country: None (occurrence: None)
  Receive Date: 20081210
  Receipt Date: 20081205
  Transmission Date: 20090506
  Serious: Yes (Other)
  Sender: FDA-Public Use
  Company Number: JP-BRISTOL-MYERS SQUIBB COMPANY-14435739

PATIENT
  Age: 65 Year
  Sex: Male

DRUGS (4)
  1. VEPESID [Suspect]
     Indication: SMALL CELL LUNG CANCER STAGE UNSPECIFIED
     Route: 041
  2. IRINOTECAN HCL [Suspect]
  3. RANDA [Suspect]
  4. RADIOTHERAPY [Suspect]

REACTIONS (1)
  - LUNG ADENOCARCINOMA [None]
